FAERS Safety Report 24136442 (Version 1)
Quarter: 2024Q3

REPORT INFORMATION
  Report Type: Spontaneous
  Country: CN (occurrence: CN)
  Receive Date: 20240725
  Receipt Date: 20240725
  Transmission Date: 20241016
  Serious: Yes (Life-Threatening)
  Sender: RANBAXY
  Company Number: CN-SUN PHARMACEUTICAL INDUSTRIES LTD-2024R1-458545

PATIENT
  Age: 3 Month
  Sex: Male

DRUGS (8)
  1. BOSENTAN [Suspect]
     Active Substance: BOSENTAN
     Indication: Pulmonary hypertension
     Dosage: 4 MILLIGRAM/KILOGRAM, DAILY
     Route: 065
  2. BOSENTAN [Suspect]
     Active Substance: BOSENTAN
     Indication: Pulmonary hypertensive crisis
  3. FUROSEMIDE [Suspect]
     Active Substance: FUROSEMIDE
     Indication: Pulmonary hypertension
     Dosage: UNK (0.1 MG/KG/H)
     Route: 065
  4. FUROSEMIDE [Suspect]
     Active Substance: FUROSEMIDE
     Indication: Pulmonary hypertensive crisis
  5. NOREPINEPHRINE [Suspect]
     Active Substance: NOREPINEPHRINE\NOREPINEPHRINE BITARTRATE
     Indication: Blood pressure management
     Dosage: UNK (0.3 ?G/KG/MIN)
     Route: 065
  6. MILRINONE [Suspect]
     Active Substance: MILRINONE
     Indication: Pulmonary hypertension
     Dosage: UNK (0.75 ?G/KG/MIN, CONTINUOUS)
     Route: 065
  7. MILRINONE [Suspect]
     Active Substance: MILRINONE
     Indication: Pulmonary hypertensive crisis
  8. VASOPRESSIN [Suspect]
     Active Substance: VASOPRESSIN
     Indication: Blood pressure management
     Dosage: UNK (0.04 U/KG/MIN)
     Route: 065

REACTIONS (1)
  - Condition aggravated [Unknown]
